FAERS Safety Report 5188148-8 (Version None)
Quarter: 2006Q4

REPORT INFORMATION
  Report Type: 
  Country: None (occurrence: None)
  Receive Date: 20061221
  Receipt Date: 20061218
  Transmission Date: 20070319
  Serious: Yes (Hospitalization)
  Sender: FDA-Public Use
  Company Number: AU-SANOFI-SYNTHELABO-F01200602529

PATIENT
  Sex: Female
  Weight: 53 kg

DRUGS (4)
  1. ESOMEPRAZOLE MAGNESIUM [Concomitant]
  2. LEUCOVORIN CALCIUM [Suspect]
     Route: 041
     Dates: start: 20061106, end: 20061107
  3. FLUOROURACIL [Suspect]
     Route: 041
     Dates: start: 20061106, end: 20061107
  4. OXALIPLATIN [Suspect]
     Indication: COLON CANCER
     Route: 041
     Dates: start: 20061106, end: 20061106

REACTIONS (4)
  - DEHYDRATION [None]
  - DUODENITIS [None]
  - NAUSEA [None]
  - VOMITING [None]
